FAERS Safety Report 6598655-9 (Version None)
Quarter: 2010Q1

REPORT INFORMATION
  Report Type: 
  Country: None (occurrence: None)
  Receive Date: 20100224
  Receipt Date: 20100212
  Transmission Date: 20100710
  Serious: Yes (Life-Threatening)
  Sender: FDA-Public Use
  Company Number: CA-SOLVAY-00210001009

PATIENT
  Age: 629 Month
  Sex: Female
  Weight: 72 kg

DRUGS (6)
  1. COVERSYL (4MG) TABLET [Suspect]
     Indication: HYPERTENSION
     Dosage: DAILY DOSE: 4 MILLIGRAM(S)
     Route: 048
     Dates: start: 20091101, end: 20091201
  2. COVERSYL (4MG) TABLET [Suspect]
     Dosage: DAILY DOSE: 4 MILLIGRAM(S)
     Route: 048
     Dates: start: 20100106, end: 20100126
  3. EFFEXOR XR [Concomitant]
     Indication: ANXIETY
     Dosage: DAILY DOSE: 75 MILLIGRAM(S)
     Route: 065
     Dates: start: 20060101
  4. ESTRACE [Concomitant]
     Indication: MENOPAUSE
     Dosage: DAILY DOSE: 1 MILLIGRAM(S)
     Route: 065
     Dates: start: 20020101
  5. PROMETRIUM [Concomitant]
     Indication: MENOPAUSE
     Dosage: DAILY DOSE: 100 MILLIGRAM(S)
     Route: 065
     Dates: start: 20020101
  6. SERAX [Concomitant]
     Indication: INSOMNIA
     Dosage: DAILY DOSE:  UNKNOWN, AS USED: 10 MILLIGRAM(S), FREQUENCY: AS NEEDED.
     Route: 065
     Dates: start: 20060101

REACTIONS (4)
  - ANGIOEDEMA [None]
  - ERYTHEMA [None]
  - PRODUCTIVE COUGH [None]
  - SINUSITIS [None]
